FAERS Safety Report 10404310 (Version 2)
Quarter: 2014Q2

REPORT INFORMATION
  Report Type: Spontaneous
  Country: US (occurrence: None)
  Receive Date: 20140214
  Receipt Date: 20140625
  Transmission Date: 20141212
  Serious: No
  Sender: FDA-Public Use
  Company Number: A-NJ2014-93842

PATIENT
  Age: 74 Year
  Sex: Male

DRUGS (3)
  1. OPSUMIT [Suspect]
     Indication: PULMONARY ARTERIAL HYPERTENSION
     Route: 048
     Dates: start: 20131223, end: 20140111
  2. REVATIO(SILDANFIL CITRATE) [Concomitant]
  3. TYVASO(TREPROSTINIL SODIUM) [Concomitant]

REACTIONS (9)
  - Oxygen saturation decreased [None]
  - Hypersomnia [None]
  - Fluid retention [None]
  - Dyspnoea [None]
  - Blood pressure increased [None]
  - Headache [None]
  - Insomnia [None]
  - Weight increased [None]
  - Oedema peripheral [None]
